FAERS Safety Report 9219676 (Version 1)
Quarter: 2013Q2

REPORT INFORMATION
  Report Type: Spontaneous
  Country: DE (occurrence: DE)
  Receive Date: 20130409
  Receipt Date: 20130409
  Transmission Date: 20140414
  Serious: Yes (Death, Other)
  Sender: FDA-Public Use
  Company Number: DE-CELGENEUS-062-21880-13020970

PATIENT
  Age: 67 Year
  Sex: Female

DRUGS (5)
  1. REVLIMID [Suspect]
     Indication: PLASMACYTOMA
     Dosage: 25 MILLIGRAM
     Route: 048
     Dates: start: 20111018, end: 20111107
  2. REVLIMID [Suspect]
     Dosage: 15 MILLIGRAM
     Route: 048
     Dates: start: 20111115, end: 20111205
  3. DEXAMETHASONE [Concomitant]
     Indication: PLASMACYTOMA
     Dosage: 40 MILLIGRAM
     Route: 048
     Dates: start: 20111017, end: 20111021
  4. DEXAMETHASONE [Concomitant]
     Dosage: 40 MILLIGRAM
     Route: 048
     Dates: start: 20111024
  5. ZOMETA [Concomitant]
     Indication: OSTEOLYSIS
     Route: 065

REACTIONS (7)
  - Sepsis [Unknown]
  - Pancytopenia [Unknown]
  - Pneumonia [Fatal]
  - Renal failure acute [Unknown]
  - Vomiting [Unknown]
  - Diarrhoea [Unknown]
  - Hypocalcaemia [Unknown]
